FAERS Safety Report 6470305-1 (Version None)
Quarter: 2009Q4

REPORT INFORMATION
  Report Type: 
  Country: None (occurrence: None)
  Receive Date: 20091203
  Receipt Date: 20091123
  Transmission Date: 20100525
  Serious: Yes (Death, Hospitalization)
  Sender: FDA-Public Use
  Company Number: SE-ABBOTT-05P-150-0300068-00

PATIENT
  Sex: Female

DRUGS (9)
  1. HUMIRA [Suspect]
     Indication: RHEUMATOID ARTHRITIS
     Route: 058
     Dates: start: 20030821, end: 20040219
  2. DETRUSITOL [Concomitant]
     Indication: DRUG USE FOR UNKNOWN INDICATION
  3. CITALOPRAM HYDROBROMIDE [Concomitant]
     Indication: DRUG USE FOR UNKNOWN INDICATION
  4. GLUCOSAMINE [Concomitant]
     Indication: DRUG USE FOR UNKNOWN INDICATION
  5. HIPREX [Concomitant]
     Indication: DRUG USE FOR UNKNOWN INDICATION
  6. MINIRIN [Concomitant]
     Indication: DRUG USE FOR UNKNOWN INDICATION
  7. SELOKEN [Concomitant]
     Indication: DRUG USE FOR UNKNOWN INDICATION
  8. TROMBYL [Concomitant]
     Indication: DRUG USE FOR UNKNOWN INDICATION
  9. IMOVANE [Concomitant]
     Indication: DRUG USE FOR UNKNOWN INDICATION

REACTIONS (6)
  - DISORIENTATION [None]
  - FATIGUE [None]
  - GENERAL PHYSICAL HEALTH DETERIORATION [None]
  - HEPATIC NEOPLASM [None]
  - METASTASES TO LIVER [None]
  - PYREXIA [None]
